FAERS Safety Report 20083392 (Version 1)
Quarter: 2021Q4

REPORT INFORMATION
  Report Type: Report from Study
  Country: US (occurrence: US)
  Receive Date: 20211117
  Receipt Date: 20211117
  Transmission Date: 20220303
  Serious: No
  Sender: FDA-Public Use
  Company Number: US-NOVARTISTESTPH-NVSC2018US021093

PATIENT
  Sex: Male

DRUGS (2)
  1. LUTATHERA [Suspect]
     Active Substance: LUTETIUM OXODOTREOTIDE LU-177
     Indication: Product used for unknown indication
     Dosage: UNK
     Route: 065
  2. ZOFRAN [Suspect]
     Active Substance: ONDANSETRON HYDROCHLORIDE
     Indication: Nausea
     Dosage: 8 MG (EVERY 8 HOURS)
     Route: 048

REACTIONS (7)
  - Abdominal pain [Unknown]
  - Plantar fasciitis [Unknown]
  - Viral upper respiratory tract infection [Unknown]
  - Sleep apnoea syndrome [Unknown]
  - Rhinitis allergic [Unknown]
  - Cerumen impaction [Unknown]
  - Alanine aminotransferase increased [Unknown]
